FAERS Safety Report 21218514 (Version 1)
Quarter: 2022Q3

REPORT INFORMATION
  Report Type: Report from Study
  Country: CA (occurrence: CA)
  Receive Date: 20220816
  Receipt Date: 20220816
  Transmission Date: 20221027
  Serious: Yes (Hospitalization)
  Sender: FDA-Public Use
  Company Number: CA-MYLANLABS-2022M1014786

PATIENT
  Age: 16 Year
  Sex: Male

DRUGS (1)
  1. HULIO [Suspect]
     Active Substance: ADALIMUMAB-FKJP
     Indication: Crohn^s disease
     Dosage: 40 MILLIGRAM, BIWEEKLY, 40MG,2
     Route: 065

REACTIONS (4)
  - Hospitalisation [Unknown]
  - Malaise [Unknown]
  - Pyrexia [Unknown]
  - Off label use [Unknown]
